FAERS Safety Report 4282054-9 (Version None)
Quarter: 2004Q1

REPORT INFORMATION
  Report Type: 
  Country: None (occurrence: None)
  Receive Date: 20040128
  Receipt Date: 20040113
  Transmission Date: 20041129
  Serious: Yes (Hospitalization)
  Sender: FDA-Public Use
  Company Number: 2003-BP-08695NB

PATIENT
  Age: 83 Year
  Sex: Female

DRUGS (7)
  1. MOBIC [Suspect]
     Indication: LOCALISED OSTEOARTHRITIS
     Dosage: 10 MG
     Dates: start: 20030923, end: 20030925
  2. BAYASPIRIN (ACETYLSALICYLIC ACID) (TA) [Suspect]
     Indication: THROMBOPHLEBITIS
     Dosage: 100 MG, PO
     Route: 048
     Dates: start: 20030923, end: 20030925
  3. DEPAS (ETIZOLAM) [Concomitant]
  4. JUVELA NICOTNIATE (TOCOPHEROL NICOTINATE) (KAW) [Concomitant]
  5. MAGNESIUM OXIDE (PL) [Concomitant]
  6. ORBENIN (CLOXACILLIN SODIUM) (AM) [Concomitant]
  7. DALACIN (CLINDAMYCIN HYDROCHLORIDE) (AM) [Concomitant]

REACTIONS (4)
  - ASTHMA [None]
  - BLOOD IMMUNOGLOBULIN E INCREASED [None]
  - PYREXIA [None]
  - RASH GENERALISED [None]
